FAERS Safety Report 4277342-6 (Version None)
Quarter: 2004Q1

REPORT INFORMATION
  Report Type: 
  Country: None (occurrence: None)
  Receive Date: 20040112
  Receipt Date: 20031229
  Transmission Date: 20041129
  Serious: Yes (Other)
  Sender: FDA-Public Use
  Company Number: A0490757A

PATIENT
  Age: 63 Year
  Sex: Female

DRUGS (5)
  1. NICORETTE [Suspect]
     Indication: EX-SMOKER
     Dosage: 2 MG/TRANSBUCCAL
     Route: 002
     Dates: start: 20031227, end: 20031227
  2. CARVEDILOL [Concomitant]
  3. POTASSIUM CHLORIDE [Concomitant]
  4. ISOSORBIDE MONMONITRATE [Concomitant]
  5. SALBUTAMOL SULPHATE [Concomitant]

REACTIONS (6)
  - ASTHMA [None]
  - CHOKING [None]
  - COUGH [None]
  - DYSPNOEA [None]
  - LOSS OF CONSCIOUSNESS [None]
  - RETCHING [None]
